FAERS Safety Report 6019417-7 (Version None)
Quarter: 2008Q4

REPORT INFORMATION
  Report Type: 
  Country: None (occurrence: None)
  Receive Date: 20081224
  Receipt Date: 20081215
  Transmission Date: 20090506
  Serious: Yes (Death)
  Sender: FDA-Public Use
  Company Number: US-PFIZER INC-2008153448

PATIENT
  Age: 89 Year
  Sex: Male

DRUGS (3)
  1. HEPARIN SODIUM [Suspect]
  2. TENECTEPLASE [Suspect]
  3. CLOPIDOGREL [Suspect]

REACTIONS (1)
  - DRUG TOXICITY [None]
